FAERS Safety Report 11639495 (Version 1)
Quarter: 2015Q4

REPORT INFORMATION
  Report Type: Spontaneous
  Country: US (occurrence: US)
  Receive Date: 20151019
  Receipt Date: 20151019
  Transmission Date: 20160304
  Serious: No
  Sender: FDA-Public Use
  Company Number: PHEH2014US023866

PATIENT
  Age: 52 Year
  Sex: Female
  Weight: 64.4 kg

DRUGS (1)
  1. ZOMETA [Suspect]
     Active Substance: ZOLEDRONIC ACID
     Indication: PLASMA CELL MYELOMA
     Dosage: 4 MG, EVERY 8 WEEKS
     Route: 042
     Dates: start: 20120101, end: 20130401

REACTIONS (3)
  - Pyrexia [Unknown]
  - Urinary tract infection [Not Recovered/Not Resolved]
  - Abdominal pain [Unknown]

NARRATIVE: CASE EVENT DATE: 20130609
